FAERS Safety Report 21254074 (Version 1)
Quarter: 2022Q3

REPORT INFORMATION
  Report Type: Spontaneous
  Country: US (occurrence: US)
  Receive Date: 20220825
  Receipt Date: 20220825
  Transmission Date: 20221027
  Serious: No
  Sender: FDA-Public Use
  Company Number: US-BRISTOL-MYERS SQUIBB COMPANY-2022-095207

PATIENT
  Age: 80 Year
  Sex: Female

DRUGS (1)
  1. REVLIMID [Suspect]
     Active Substance: LENALIDOMIDE
     Indication: Neoplasm malignant
     Dosage: FREQ - TAKE 1 CAPSULE BY MOUTH DAILY FOR 21 CONSECUTIVE DAYS, THEN STOP FOR 7 CONSECUTIVE DAYS. SWAL
     Route: 048

REACTIONS (1)
  - Product prescribing issue [Unknown]
